FAERS Safety Report 8809442 (Version 1)
Quarter: 2012Q4

REPORT INFORMATION
  Report Type: 
  Country: GB (occurrence: GB)
  Receive Date: 20120926
  Receipt Date: 20120926
  Transmission Date: 20130627
  Serious: Yes (Hospitalization)
  Sender: FDA-Public Use
  Company Number: GB-BAUSCH-BL-2012-000917

PATIENT
  Age: 79 Year
  Sex: Female

DRUGS (2)
  1. ATROPINE SULFATE [Suspect]
     Indication: BRADYCARDIA
     Dates: start: 20120824, end: 20120824
  2. NO DRUG NAME [Concomitant]

REACTIONS (7)
  - Confusional state [Recovered/Resolved]
  - Hallucination, visual [Recovered/Resolved]
  - Muscular weakness [Recovered/Resolved]
  - Restlessness [Recovered/Resolved]
  - Dysarthria [Recovered/Resolved]
  - Swollen tongue [Recovered/Resolved]
  - Diplopia [Recovered/Resolved]
